FAERS Safety Report 5234592-X (Version None)
Quarter: 2007Q1

REPORT INFORMATION
  Report Type: 
  Country: None (occurrence: None)
  Receive Date: 20070209
  Receipt Date: 20070202
  Transmission Date: 20070707
  Serious: Yes (Other)
  Sender: FDA-Public Use
  Company Number: US-JNJFOC-20070200844

PATIENT
  Age: 3 Year
  Sex: Male
  Weight: 13.61 kg

DRUGS (2)
  1. CHILDRENS TYLENOL LIQUID BUBBLEGUM YUM [Suspect]
  2. CHILDRENS TYLENOL LIQUID BUBBLEGUM YUM [Suspect]
     Indication: PYREXIA
     Dosage: 160MG, 2-3 TIMES DAILY AS NEEDED

REACTIONS (4)
  - HALLUCINATION [None]
  - HALLUCINATION, VISUAL [None]
  - INSOMNIA [None]
  - SCREAMING [None]
